FAERS Safety Report 5057333-8 (Version None)
Quarter: 2006Q3

REPORT INFORMATION
  Report Type: 
  Country: None (occurrence: None)
  Receive Date: 20060721
  Receipt Date: 20050815
  Transmission Date: 20061208
  Serious: No
  Sender: FDA-Public Use
  Company Number: US-GLAXOSMITHKLINE-A0570258A

PATIENT
  Sex: Female

DRUGS (9)
  1. AVANDIA [Suspect]
     Dosage: 2MG PER DAY
     Route: 048
     Dates: start: 20050802
  2. METFORMIN [Suspect]
     Dosage: 500MG PER DAY
     Route: 048
     Dates: start: 20050701
  3. LIPITOR [Concomitant]
  4. DILTIAZEM HCL [Concomitant]
  5. ENALAPRIL MALEATE [Concomitant]
  6. VITAMIN E [Concomitant]
  7. ASPIRIN [Concomitant]
  8. PRILOSEC [Concomitant]
  9. RANITIDINE [Concomitant]

REACTIONS (2)
  - GASTRIC DISORDER [None]
  - HEADACHE [None]
